FAERS Safety Report 7599077-4 (Version None)
Quarter: 2011Q3

REPORT INFORMATION
  Report Type: 
  Country: None (occurrence: None)
  Receive Date: 20110711
  Receipt Date: 20110704
  Transmission Date: 20111222
  Serious: Yes (Life-Threatening, Hospitalization)
  Sender: FDA-Public Use
  Company Number: AT-BRISTOL-MYERS SQUIBB COMPANY-15877913

PATIENT
  Age: 68 Year
  Sex: Female
  Weight: 60 kg

DRUGS (10)
  1. FLUOROURACIL [Suspect]
     Indication: OESOPHAGEAL CARCINOMA
     Dosage: DAY1-5
     Route: 042
     Dates: start: 20091013, end: 20091017
  2. CETUXIMAB [Suspect]
     Indication: OESOPHAGEAL CARCINOMA
     Route: 042
     Dates: start: 20091013, end: 20091020
  3. SANGUINARIA [Concomitant]
     Dosage: 1DF=1 AMP
     Dates: start: 20091019
  4. OXAZEPAM [Concomitant]
     Dates: start: 20090101
  5. AMITRIPTYLINE HCL [Concomitant]
     Dates: start: 20091011
  6. ACETAMINOPHEN [Concomitant]
     Dates: start: 20090101
  7. SUCRALFATE [Concomitant]
     Dosage: 1DF=1/BAG
     Dates: start: 20091020
  8. TAXOTERE [Suspect]
     Indication: OESOPHAGEAL CARCINOMA
     Dosage: DAY1
     Route: 042
     Dates: start: 20091013, end: 20091013
  9. LOVENOX [Concomitant]
     Dates: start: 20091013
  10. CISPLATIN [Suspect]
     Indication: OESOPHAGEAL CARCINOMA
     Dosage: DAY 1-5
     Route: 042
     Dates: start: 20091013, end: 20091017

REACTIONS (2)
  - LEUKOPENIA [None]
  - DIARRHOEA [None]
